FAERS Safety Report 7315663-0 (Version None)
Quarter: 2011Q1

REPORT INFORMATION
  Report Type: 
  Country: None (occurrence: None)
  Receive Date: 20110225
  Receipt Date: 20110209
  Transmission Date: 20110831
  Serious: Yes (Hospitalization, Other)
  Sender: FDA-Public Use
  Company Number: HU-GENENTECH-313796

PATIENT

DRUGS (9)
  1. RITUXIMAB [Suspect]
     Dosage: UNK
     Route: 042
  2. RITUXIMAB [Suspect]
     Indication: AUTOIMMUNE DISORDER
     Dosage: 1000 MG, UNK
     Route: 042
  3. ADALIMUMAB [Suspect]
     Indication: AUTOIMMUNE DISORDER
     Dosage: UNK
     Route: 065
  4. INFLIXIMAB [Suspect]
     Indication: AUTOIMMUNE DISORDER
     Dosage: UNK
     Route: 065
  5. RITUXIMAB [Suspect]
     Dosage: 1000 MG, Q2W
     Route: 042
  6. SOLU-MEDROL [Concomitant]
     Indication: PREMEDICATION
     Dosage: 40 MG, UNK
     Route: 042
  7. CHLOROPYRAMINE [Concomitant]
     Indication: PREMEDICATION
     Dosage: 20 MG, UNK
     Route: 042
  8. ETANERCEPT [Suspect]
     Indication: AUTOIMMUNE DISORDER
     Dosage: UNK
     Route: 065
  9. PARACETAMOL [Concomitant]
     Indication: PREMEDICATION
     Dosage: 500 MG, UNK
     Route: 048

REACTIONS (11)
  - KERATOACANTHOMA [None]
  - HERPES SIMPLEX [None]
  - HERPES ZOSTER [None]
  - ERYSIPELAS [None]
  - HYPERSENSITIVITY [None]
  - ERYTHEMA MIGRANS [None]
  - SKIN PAPILLOMA [None]
  - CARDIOVASCULAR DISORDER [None]
  - BASAL CELL CARCINOMA [None]
  - SEBORRHOEIC KERATOSIS [None]
  - FUNGAL INFECTION [None]
